FAERS Safety Report 20760790 (Version 1)
Quarter: 2022Q2

REPORT INFORMATION
  Report Type: Spontaneous
  Country: None (occurrence: US)
  Receive Date: 20220428
  Receipt Date: 20220428
  Transmission Date: 20220721
  Serious: No
  Sender: FDA-Public Use
  Company Number: US-Sentynl Therapeutics, Inc.  -2128224

PATIENT
  Age: 61 Year
  Sex: Female
  Weight: 76.364 kg

DRUGS (1)
  1. LEVORPHANOL TARTRATE [Suspect]
     Active Substance: LEVORPHANOL TARTRATE
     Indication: Complex regional pain syndrome
     Dates: start: 20210301, end: 20210414

REACTIONS (8)
  - Insurance issue [Not Recovered/Not Resolved]
  - Therapy interrupted [Unknown]
  - Burning sensation [Not Recovered/Not Resolved]
  - Pain in extremity [Not Recovered/Not Resolved]
  - Insomnia [Not Recovered/Not Resolved]
  - Blister [Not Recovered/Not Resolved]
  - Pain [Not Recovered/Not Resolved]
  - Gait disturbance [Not Recovered/Not Resolved]
